FAERS Safety Report 6792746-5 (Version None)
Quarter: 2010Q2

REPORT INFORMATION
  Report Type: 
  Country: None (occurrence: None)
  Receive Date: 20100624
  Receipt Date: 20081216
  Transmission Date: 20101027
  Serious: Yes (Hospitalization, Disabling, Other)
  Sender: FDA-Public Use
  Company Number: US-PFIZER INC-2008072036

PATIENT
  Sex: Male
  Weight: 79 kg

DRUGS (9)
  1. SUTENT [Suspect]
     Indication: METASTATIC RENAL CELL CARCINOMA
     Dosage: 50 MG, 2 WEEKS ON 2 WEEKS OFF
     Route: 048
     Dates: start: 20070108, end: 20080705
  2. ALPRAZOLAM [Concomitant]
  3. ASPIRINE [Concomitant]
  4. GEMFIBROZIL [Concomitant]
  5. ISOSORBIDE DINITRATE [Concomitant]
  6. LIPITOR [Concomitant]
  7. LISINOPRIL [Concomitant]
  8. METOPROLOL [Concomitant]
  9. MULTI-VITAMINS [Concomitant]

REACTIONS (4)
  - DIARRHOEA [None]
  - DIVERTICULITIS [None]
  - INTESTINAL PERFORATION [None]
  - RASH [None]
